FAERS Safety Report 6937761-3 (Version None)
Quarter: 2010Q3

REPORT INFORMATION
  Report Type: 
  Country: None (occurrence: None)
  Receive Date: 20100823
  Receipt Date: 20100818
  Transmission Date: 20110219
  Serious: Yes (Hospitalization, Other)
  Sender: FDA-Public Use
  Company Number: ES-BRISTOL-MYERS SQUIBB COMPANY-15194970

PATIENT
  Age: 62 Year
  Sex: Female

DRUGS (1)
  1. SPRYCEL [Suspect]
     Indication: CHRONIC MYELOID LEUKAEMIA
     Dosage: 50MG ALTER 100MG INT 18DC07 RE 24JAN08 REIN 25AG08 RE 27NV08(50MG/D) RE 16AR(50 AL 100MG)
     Dates: start: 20070614, end: 20100701

REACTIONS (21)
  - ALOPECIA [None]
  - BRONCHOPNEUMONIA [None]
  - CONTUSION [None]
  - DECREASED APPETITE [None]
  - DEPRESSION [None]
  - DIZZINESS [None]
  - DRUG TOXICITY [None]
  - DRY SKIN [None]
  - FIBROMYALGIA [None]
  - GASTROINTESTINAL VIRAL INFECTION [None]
  - HEADACHE [None]
  - HYPERTENSIVE CRISIS [None]
  - INSOMNIA [None]
  - INTERVERTEBRAL DISC PROTRUSION [None]
  - LUNG INFILTRATION [None]
  - LYMPHOCYTOSIS [None]
  - MALAISE [None]
  - MUSCLE SPASMS [None]
  - PAIN [None]
  - SPINAL COLUMN STENOSIS [None]
  - WEIGHT DECREASED [None]
